FAERS Safety Report 6299032-0 (Version None)
Quarter: 2009Q3

REPORT INFORMATION
  Report Type: 
  Country: None (occurrence: None)
  Receive Date: 20090803
  Receipt Date: 20090717
  Transmission Date: 20100115
  Serious: Yes (Other)
  Sender: FDA-Public Use
  Company Number: 2009S1005736

PATIENT
  Age: 60 Year
  Sex: Female

DRUGS (1)
  1. PHOSPHOSODA FLAVOR NOT SPECIFIED [Suspect]
     Indication: COLONOSCOPY
     Dosage: 90 ML; TOTAL; PO
     Route: 048
     Dates: start: 20070529

REACTIONS (5)
  - BLOOD CREATININE INCREASED [None]
  - GLOMERULAR VASCULAR DISORDER [None]
  - HYPOGLYCAEMIA [None]
  - NEPHROCALCINOSIS [None]
  - PALPITATIONS [None]
